FAERS Safety Report 5125078-1 (Version None)
Quarter: 2006Q4

REPORT INFORMATION
  Report Type: 
  Country: None (occurrence: None)
  Receive Date: 20061011
  Receipt Date: 20050628
  Transmission Date: 20070319
  Serious: Yes (Hospitalization, Other)
  Sender: FDA-Public Use
  Company Number: US-BRISTOL-MYERS SQUIBB COMPANY-13018098

PATIENT
  Age: 64 Year
  Sex: Female

DRUGS (3)
  1. BUSPAR [Suspect]
  2. ZOLOFT [Suspect]
     Indication: MAJOR DEPRESSION
     Route: 048
     Dates: start: 20050613, end: 20050622
  3. BLINDED: PLACEBO [Suspect]
     Indication: MAJOR DEPRESSION
     Route: 048
     Dates: start: 20050613, end: 20050622

REACTIONS (3)
  - OVERDOSE [None]
  - SELF INJURIOUS BEHAVIOUR [None]
  - SUICIDE ATTEMPT [None]
